FAERS Safety Report 7078835-9 (Version None)
Quarter: 2010Q4

REPORT INFORMATION
  Report Type: 
  Country: None (occurrence: None)
  Receive Date: 20101102
  Receipt Date: 20101025
  Transmission Date: 20110411
  Serious: Yes (Life-Threatening, Hospitalization)
  Sender: FDA-Public Use
  Company Number: US-SANOFI-AVENTIS-2010SA064908

PATIENT
  Age: 70 Year
  Sex: Female

DRUGS (23)
  1. OXALIPLATIN [Suspect]
     Route: 042
     Dates: start: 20100711, end: 20100711
  2. OXALIPLATIN [Suspect]
     Route: 042
     Dates: start: 20100726, end: 20100726
  3. CAPECITABINE [Suspect]
     Route: 048
     Dates: end: 20100726
  4. LASIX [Concomitant]
  5. SYNTHROID [Concomitant]
  6. OMEPRAZOLE [Concomitant]
  7. AVANDIA [Concomitant]
  8. SILDENAFIL CITRATE [Concomitant]
  9. BENICAR [Concomitant]
  10. WARFARIN [Concomitant]
  11. METFORMIN [Concomitant]
  12. POTASSIUM CHLORIDE [Concomitant]
  13. MAGNESIUM [Concomitant]
  14. PROPAFENONE HCL [Concomitant]
  15. AMLODIPINE [Concomitant]
  16. AMARYL [Concomitant]
  17. CRESTOR [Concomitant]
  18. TRAMADOL HCL [Concomitant]
  19. HUMALOG [Concomitant]
  20. LANTUS [Concomitant]
  21. AMITRIPTYLINE HCL [Concomitant]
  22. TRACLEER [Concomitant]
  23. CIPRO [Concomitant]

REACTIONS (2)
  - ILL-DEFINED DISORDER [None]
  - RESPIRATORY ARREST [None]
